FAERS Safety Report 4345164-3 (Version None)
Quarter: 2004Q2

REPORT INFORMATION
  Report Type: 
  Country: None (occurrence: None)
  Receive Date: 20040420
  Receipt Date: 20040413
  Transmission Date: 20050107
  Serious: Yes (Death, Hospitalization, Other)
  Sender: FDA-Public Use
  Company Number: US-SHR-03-004760

PATIENT
  Age: 52 Year
  Sex: Male

DRUGS (2)
  1. BETASERON [Suspect]
     Indication: MULTIPLE SCLEROSIS
     Dosage: 8 MIU, EVERY 2D, SUBCUTANEOUS;  UPWARD TITRATION BY 2 MIU/WEEK, SUBCUTANEOUS
     Route: 058
     Dates: start: 19980301, end: 20030226
  2. BETASERON [Suspect]
     Indication: MULTIPLE SCLEROSIS
     Dosage: 8 MIU, EVERY 2D, SUBCUTANEOUS;  UPWARD TITRATION BY 2 MIU/WEEK, SUBCUTANEOUS
     Route: 058
     Dates: start: 20030308

REACTIONS (7)
  - DYSPHAGIA [None]
  - INFECTIOUS MONONUCLEOSIS [None]
  - METASTASES TO LYMPH NODES [None]
  - NECK MASS [None]
  - PNEUMONIA [None]
  - RESPIRATORY FAILURE [None]
  - TONSIL CANCER [None]
